FAERS Safety Report 4591720-7 (Version None)
Quarter: 2005Q1

REPORT INFORMATION
  Report Type: 
  Country: None (occurrence: None)
  Receive Date: 20050218
  Receipt Date: 20050214
  Transmission Date: 20050727
  Serious: No
  Sender: FDA-Public Use
  Company Number: 05H-163-0290907-00

PATIENT
  Sex: Female

DRUGS (1)
  1. DEMEROL [Suspect]
     Dosage: SINGLE DOSE, INTRAVENOUS
     Route: 042
     Dates: start: 20050201, end: 20050201

REACTIONS (4)
  - ANAPHYLACTIC SHOCK [None]
  - BURNING SENSATION [None]
  - LOSS OF CONSCIOUSNESS [None]
  - URTICARIA GENERALISED [None]
